FAERS Safety Report 5437571-2 (Version None)
Quarter: 2007Q3

REPORT INFORMATION
  Report Type: 
  Country: None (occurrence: None)
  Receive Date: 20070831
  Receipt Date: 20070822
  Transmission Date: 20080115
  Serious: No
  Sender: FDA-Public Use
  Company Number: A0673654A

PATIENT
  Sex: Female

DRUGS (2)
  1. ALLI [Suspect]
     Indication: DRUG USE FOR UNKNOWN INDICATION
  2. SEASONALE [Concomitant]

REACTIONS (4)
  - FREQUENT BOWEL MOVEMENTS [None]
  - HEADACHE [None]
  - MENSTRUATION IRREGULAR [None]
  - NONSPECIFIC REACTION [None]
